FAERS Safety Report 21767826 (Version 1)
Quarter: 2022Q4

REPORT INFORMATION
  Report Type: Spontaneous
  Country: SE (occurrence: None)
  Receive Date: 20221222
  Receipt Date: 20221222
  Transmission Date: 20230113
  Serious: Yes (Hospitalization)
  Sender: FDA-Public Use
  Company Number: 2022A406137

PATIENT
  Age: 22 Year
  Sex: Male

DRUGS (4)
  1. QUETIAPINE [Suspect]
     Active Substance: QUETIAPINE
     Dosage: 600.0MG ONCE/SINGLE ADMINISTRATION
     Route: 065
     Dates: start: 20210522, end: 20210522
  2. INDERAL [Suspect]
     Active Substance: PROPRANOLOL HYDROCHLORIDE
     Dosage: UNCLEAR AMOUNT ONCE/SINGLE ADMINISTRATION
     Route: 065
     Dates: start: 20210522, end: 20210522
  3. LISDEXAMFETAMINE DIMESYLATE [Suspect]
     Active Substance: LISDEXAMFETAMINE DIMESYLATE
     Dosage: 1050.0MG ONCE/SINGLE ADMINISTRATION
     Route: 065
     Dates: start: 20210522, end: 20210522
  4. OXAZEPAM [Suspect]
     Active Substance: OXAZEPAM
     Dosage: UNCLEAR AMOUNT ONCE/SINGLE ADMINISTRATION
     Route: 065
     Dates: start: 20210522, end: 20210522

REACTIONS (2)
  - Intentional self-injury [Unknown]
  - Intentional overdose [Unknown]

NARRATIVE: CASE EVENT DATE: 20210522
